FAERS Safety Report 18833063 (Version 2)
Quarter: 2021Q4

REPORT INFORMATION
  Report Type: Report from Study
  Country: None (occurrence: IL)
  Receive Date: 20210203
  Receipt Date: 20211020
  Transmission Date: 20220304
  Serious: Yes (Hospitalization)
  Sender: FDA-Public Use
  Company Number: IL-ABBVIE-20K-082-3550570-00

PATIENT
  Sex: Female

DRUGS (1)
  1. HUMIRA [Suspect]
     Active Substance: ADALIMUMAB
     Indication: Hidradenitis
     Route: 058
     Dates: start: 20200623

REACTIONS (8)
  - Hidradenitis [Recovered/Resolved]
  - Abdominal abscess [Unknown]
  - Subcutaneous abscess [Unknown]
  - Drug ineffective [Not Recovered/Not Resolved]
  - Groin abscess [Unknown]
  - Hidradenitis [Not Recovered/Not Resolved]
  - Chest wall abscess [Unknown]
  - Postoperative abscess [Not Recovered/Not Resolved]

NARRATIVE: CASE EVENT DATE: 20200101
